FAERS Safety Report 5274232-7 (Version None)
Quarter: 2007Q1

REPORT INFORMATION
  Report Type: 
  Country: None (occurrence: None)
  Receive Date: 20070323
  Receipt Date: 20070312
  Transmission Date: 20070707
  Serious: Yes (Hospitalization, Disabling, Other)
  Sender: FDA-Public Use
  Company Number: PHEH2004US03527

PATIENT
  Age: 57 Year
  Sex: Female
  Weight: 87.074 kg

DRUGS (7)
  1. ESTRADERM [Suspect]
     Indication: HORMONE REPLACEMENT THERAPY
     Route: 062
     Dates: start: 19900713, end: 19960101
  2. PREMPRO [Suspect]
     Indication: HORMONE REPLACEMENT THERAPY
     Dates: start: 19960101, end: 20020603
  3. SYNTHROID [Concomitant]
     Indication: HYPOTHYROIDISM
     Dosage: UNK, QD
     Route: 048
  4. NAPROSYN [Concomitant]
     Dosage: UNK, BID
     Route: 048
  5. ASPIRIN [Concomitant]
     Dosage: UNK, QD
     Route: 048
  6. ASPIRIN [Concomitant]
     Dosage: UNK, QD
     Route: 048
  7. PREMARIN [Suspect]
     Indication: HORMONE REPLACEMENT THERAPY
     Dosage: 0.625 MG, QD
     Route: 048

REACTIONS (23)
  - ANEURYSM REPAIR [None]
  - ARTERIAL BYPASS OPERATION [None]
  - ARTERIOSCLEROSIS [None]
  - ARTHRALGIA [None]
  - ATELECTASIS [None]
  - CARDIAC FAILURE CONGESTIVE [None]
  - DEEP VEIN THROMBOSIS [None]
  - ERYTHEMA NODOSUM [None]
  - ESCHERICHIA INFECTION [None]
  - GAIT DISTURBANCE [None]
  - GROIN PAIN [None]
  - HYPERTENSION [None]
  - ILIAC ARTERY OCCLUSION [None]
  - INTERMITTENT CLAUDICATION [None]
  - LIMB DISCOMFORT [None]
  - OEDEMA PERIPHERAL [None]
  - PERIPHERAL ARTERIAL OCCLUSIVE DISEASE [None]
  - PERIPHERAL ARTERY ANEURYSM [None]
  - PERIPHERAL COLDNESS [None]
  - THROMBECTOMY [None]
  - THROMBOPHLEBITIS SUPERFICIAL [None]
  - WOUND INFECTION BACTERIAL [None]
  - WOUND INFECTION STAPHYLOCOCCAL [None]
